FAERS Safety Report 6575273-X (Version None)
Quarter: 2010Q1

REPORT INFORMATION
  Report Type: 
  Country: None (occurrence: None)
  Receive Date: 20100209
  Receipt Date: 20100127
  Transmission Date: 20100710
  Serious: Yes (Hospitalization)
  Sender: FDA-Public Use
  Company Number: FR-ASTRAZENECA-2010SE04128

PATIENT
  Age: 26497 Day
  Sex: Female

DRUGS (3)
  1. NEXIUM [Suspect]
     Dosage: ONE DF
     Route: 042
     Dates: start: 20091006, end: 20091019
  2. LOVENOX [Suspect]
     Route: 058
     Dates: start: 20091002, end: 20091016
  3. SANDOSTATINE 100UG/1 ML [Suspect]
     Route: 058
     Dates: start: 20091006, end: 20091019

REACTIONS (2)
  - NEUTROPENIA [None]
  - THROMBOCYTOPENIA [None]
